FAERS Safety Report 25118439 (Version 1)
Quarter: 2025Q1

REPORT INFORMATION
  Report Type: Spontaneous
  Country: IT (occurrence: IT)
  Receive Date: 20250325
  Receipt Date: 20250325
  Transmission Date: 20250408
  Serious: Yes (Other)
  Sender: ACCORD
  Company Number: IT-Accord-475644

PATIENT
  Age: 62 Year
  Sex: Male

DRUGS (1)
  1. CAPECITABINE [Suspect]
     Active Substance: CAPECITABINE
     Indication: Cholangiocarcinoma
     Dosage: 3 CYCLES
     Dates: start: 20220311, end: 20220516

REACTIONS (4)
  - Blood creatinine increased [Recovered/Resolved]
  - Off label use [Unknown]
  - Hyperkalaemia [Recovered/Resolved]
  - Chronic kidney disease [Recovered/Resolved]

NARRATIVE: CASE EVENT DATE: 20220524
